FAERS Safety Report 8562899 (Version 4)
Quarter: 2013Q2

REPORT INFORMATION
  Report Type: Spontaneous
  Country: AR (occurrence: AR)
  Receive Date: 20120515
  Receipt Date: 20130418
  Transmission Date: 20140414
  Serious: Yes (Other)
  Sender: FDA-Public Use
  Company Number: AR-ROCHE-1067082

PATIENT
  Age: 51 Year
  Sex: Female

DRUGS (2)
  1. XOLAIR [Suspect]
     Indication: ASTHMA
     Route: 065
     Dates: start: 2011
  2. XOLAIR [Suspect]
     Route: 065

REACTIONS (5)
  - Respiratory tract infection [Recovered/Resolved]
  - Rhinorrhoea [Recovering/Resolving]
  - Chest pain [Recovering/Resolving]
  - Aphonia [Recovering/Resolving]
  - Drug ineffective [Unknown]
